FAERS Safety Report 14705186 (Version 3)
Quarter: 2018Q3

REPORT INFORMATION
  Report Type: Spontaneous
  Country: US (occurrence: US)
  Receive Date: 20180402
  Receipt Date: 20180814
  Transmission Date: 20181010
  Serious: Yes (Death, Hospitalization)
  Sender: FDA-Public Use
  Company Number: US-PFIZER INC-2018133546

PATIENT
  Age: 69 Year
  Sex: Male
  Weight: 83 kg

DRUGS (7)
  1. CAMPTOSAR [Suspect]
     Active Substance: IRINOTECAN HYDROCHLORIDE
     Indication: PANCREATIC CARCINOMA
     Dosage: 300 MG, CYCLIC (180 MG/M2 [20% DECREASING] = 300 MG 9 14 DAYS)
     Route: 042
     Dates: start: 20180123, end: 20180320
  2. FOLFIRINOX [Concomitant]
     Active Substance: FLUOROURACIL\IRINOTECAN\LEUCOVORIN\OXALIPLATIN
     Dosage: UNK, CYCLIC, (4 CYCLES  BEFORE PASSING 8 DAYS AFTER HIS LAST TX)
  3. CAMPTOSAR [Suspect]
     Active Substance: IRINOTECAN HYDROCHLORIDE
     Dosage: 300 MG, EV. 2 WEEKS
     Route: 042
     Dates: start: 20180123, end: 20180320
  4. 5?FU [Concomitant]
     Active Substance: FLUOROURACIL
     Indication: PANCREATIC CARCINOMA
     Dosage: 650MG IV PUSH (9 14 DAYS)
     Route: 042
     Dates: start: 20180123, end: 20180320
  5. 5?FU [Concomitant]
     Active Substance: FLUOROURACIL
     Dosage: 3800 MG PUMP (9 14 DAYS)
     Dates: start: 20180123, end: 20180320
  6. OXALIPLATIN. [Concomitant]
     Active Substance: OXALIPLATIN
     Indication: PANCREATIC CARCINOMA
     Dosage: 135 MG, (9 14 DAYS)
     Dates: start: 20180123, end: 20180320
  7. LEUCOVORIN. [Concomitant]
     Active Substance: LEUCOVORIN
     Indication: PANCREATIC CARCINOMA
     Dosage: 650 MG, (9 14 DAYS)
     Dates: start: 20180123, end: 20180320

REACTIONS (4)
  - Neoplasm progression [Fatal]
  - Product use in unapproved indication [Unknown]
  - Vomiting [Fatal]
  - Diarrhoea [Fatal]

NARRATIVE: CASE EVENT DATE: 20180321
